FAERS Safety Report 16635996 (Version 3)
Quarter: 2019Q3

REPORT INFORMATION
  Report Type: Spontaneous
  Country: US (occurrence: US)
  Receive Date: 20190726
  Receipt Date: 20190823
  Transmission Date: 20191004
  Serious: Yes (Other)
  Sender: FDA-Public Use
  Company Number: US-GLENMARK PHARMACEUTICALS-2019GMK042265

PATIENT

DRUGS (7)
  1. 5 FU [Concomitant]
     Active Substance: FLUOROURACIL
     Indication: SQUAMOUS CELL CARCINOMA
  2. CALCIPOTRIENE CREAM 0.005% [Suspect]
     Active Substance: CALCIPOTRIENE
     Indication: ACTINIC KERATOSIS
  3. CALCIPOTRIENE CREAM 0.005% [Suspect]
     Active Substance: CALCIPOTRIENE
     Indication: SQUAMOUS CELL CARCINOMA
  4. CALCIPOTRIENE CREAM 0.005% [Suspect]
     Active Substance: CALCIPOTRIENE
     Indication: PHOTODERMATOSIS
  5. 5 FU [Concomitant]
     Active Substance: FLUOROURACIL
     Indication: ACTINIC KERATOSIS
     Dosage: UNK, BID
     Route: 065
  6. CALCIPOTRIENE CREAM 0.005% [Suspect]
     Active Substance: CALCIPOTRIENE
     Indication: PRECANCEROUS CELLS PRESENT
     Dosage: UNK UNK, BID
     Route: 061
     Dates: start: 201809
  7. 5 FU [Concomitant]
     Active Substance: FLUOROURACIL
     Indication: PHOTODERMATOSIS

REACTIONS (10)
  - Cellulitis [Unknown]
  - Burning sensation [Recovering/Resolving]
  - Application site erosion [Recovering/Resolving]
  - Pain [Recovering/Resolving]
  - Third degree chemical burn of skin [Recovering/Resolving]
  - Condition aggravated [Recovering/Resolving]
  - Pyoderma gangrenosum [Unknown]
  - Application site pain [Recovering/Resolving]
  - Product use in unapproved indication [Unknown]
  - Wound [Recovering/Resolving]

NARRATIVE: CASE EVENT DATE: 201810
